FAERS Safety Report 18539516 (Version 2)
Quarter: 2021Q1

REPORT INFORMATION
  Report Type: Spontaneous
  Country: US (occurrence: US)
  Receive Date: 20201124
  Receipt Date: 20210302
  Transmission Date: 20210419
  Serious: No
  Sender: FDA-Public Use
  Company Number: US-THERAPEUTICSMD-2020TMD04700

PATIENT
  Age: 33 Year
  Sex: Female
  Weight: 68.03 kg

DRUGS (1)
  1. ANNOVERA [Suspect]
     Active Substance: ETHINYL ESTRADIOL\SEGESTERONE ACETATE
     Indication: CONTRACEPTION
     Dosage: 1 RING
     Route: 067
     Dates: start: 20200807, end: 202009

REACTIONS (6)
  - Alopecia [Unknown]
  - Thrombosis [Unknown]
  - Pneumonia [Recovering/Resolving]
  - Contusion [Not Recovered/Not Resolved]
  - COVID-19 [Recovering/Resolving]
  - Pleurisy [Recovered/Resolved]

NARRATIVE: CASE EVENT DATE: 20200831
